FAERS Safety Report 19771329 (Version 3)
Quarter: 2022Q1

REPORT INFORMATION
  Report Type: Spontaneous
  Country: GB (occurrence: GB)
  Receive Date: 20210831
  Receipt Date: 20220119
  Transmission Date: 20220423
  Serious: Yes (Other)
  Sender: FDA-Public Use
  Company Number: GB-BAYER-2021-164192

PATIENT
  Age: 58 Year
  Sex: Female

DRUGS (2)
  1. PROVERA [Suspect]
     Active Substance: MEDROXYPROGESTERONE ACETATE
     Indication: Endometrial hyperplasia
     Dosage: 200 MG, 1X/DAY
     Route: 048
     Dates: start: 20190627, end: 20191010
  2. MIRENA [Suspect]
     Active Substance: LEVONORGESTREL
     Indication: Endometrial hyperplasia
     Dosage: 20 UG, DAILY (CONSULTANT PUT 2 MIRENA COILS IN/SUGGESTED PUTTING A THIRD COIL IN)
     Route: 015

REACTIONS (14)
  - Pulmonary embolism [Recovered/Resolved with Sequelae]
  - Antiphospholipid syndrome [Unknown]
  - Transient ischaemic attack [Recovering/Resolving]
  - Dyspnoea [Recovered/Resolved with Sequelae]
  - Fatigue [Recovered/Resolved with Sequelae]
  - Gait disturbance [Recovered/Resolved with Sequelae]
  - Intentional device use issue [Unknown]
  - Device use issue [Unknown]
  - Deep vein thrombosis [Unknown]
  - Endometrial cancer [Unknown]
  - Peripheral swelling [Unknown]
  - Swelling [Unknown]
  - Erythema [Unknown]
  - Mass [Unknown]

NARRATIVE: CASE EVENT DATE: 20190627
